FAERS Safety Report 21674098 (Version 2)
Quarter: 2022Q4

REPORT INFORMATION
  Report Type: Spontaneous
  Country: BR (occurrence: BR)
  Receive Date: 20221202
  Receipt Date: 20221209
  Transmission Date: 20230113
  Serious: Yes (Other)
  Sender: FDA-Public Use
  Company Number: BR-BAYER-2022A165707

PATIENT
  Age: 19 Year
  Sex: Female

DRUGS (1)
  1. KYLEENA [Suspect]
     Active Substance: LEVONORGESTREL
     Indication: Permanent contraceptive tubal implant
     Dosage: 17.5?G/DAY
     Route: 015
     Dates: start: 20210401, end: 20221201

REACTIONS (4)
  - Idiopathic intracranial hypertension [Not Recovered/Not Resolved]
  - Optic neuritis [Not Recovered/Not Resolved]
  - Vision blurred [Not Recovered/Not Resolved]
  - Weight increased [None]

NARRATIVE: CASE EVENT DATE: 20220801
